FAERS Safety Report 11560127 (Version 1)
Quarter: 2015Q3

REPORT INFORMATION
  Report Type: Spontaneous
  Country: FR (occurrence: FR)
  Receive Date: 20150928
  Receipt Date: 20150928
  Transmission Date: 20151125
  Serious: Yes (Other)
  Sender: FDA-Public Use
  Company Number: FR-SA-2015SA143223

PATIENT
  Age: 60 Year
  Sex: Female

DRUGS (15)
  1. ENDOXAN [Suspect]
     Active Substance: CYCLOPHOSPHAMIDE
     Route: 042
     Dates: start: 20150630, end: 20150721
  2. HERCEPTIN [Concomitant]
     Active Substance: TRASTUZUMAB
     Route: 042
     Dates: start: 20150721
  3. TAXOTERE [Suspect]
     Active Substance: DOCETAXEL
     Dosage: IV INFUSION.
     Dates: start: 20150701, end: 20150721
  4. SOLU-MEDROL [Concomitant]
     Active Substance: METHYLPREDNISOLONE SODIUM SUCCINATE
     Dosage: LYOPHILISATE AND SOLUTION FOR PARENTERAL USAGE
     Route: 042
     Dates: start: 20150721
  5. HERCEPTIN [Concomitant]
     Active Substance: TRASTUZUMAB
     Route: 042
     Dates: start: 20150701
  6. ZOPHREN [Concomitant]
     Active Substance: ONDANSETRON
     Route: 042
     Dates: start: 20150721
  7. APROVEL [Concomitant]
     Active Substance: IRBESARTAN
     Dosage: IN THE MORNING.
  8. EMEND [Suspect]
     Active Substance: APREPITANT
     Route: 048
     Dates: start: 201506, end: 201507
  9. HERCEPTIN [Concomitant]
     Active Substance: TRASTUZUMAB
     Route: 042
     Dates: start: 20150818
  10. HERCEPTIN [Concomitant]
     Active Substance: TRASTUZUMAB
     Route: 042
     Dates: start: 20150630
  11. ZOPHREN [Concomitant]
     Active Substance: ONDANSETRON
     Route: 042
     Dates: start: 20150701
  12. ZOPHREN [Concomitant]
     Active Substance: ONDANSETRON
     Route: 042
     Dates: start: 20150818
  13. SOLU-MEDROL [Concomitant]
     Active Substance: METHYLPREDNISOLONE SODIUM SUCCINATE
     Dosage: LYOPHILISATE AND SOLUTION FOR PARENTERAL USAGE
     Route: 042
     Dates: start: 20150701
  14. HERCEPTIN [Concomitant]
     Active Substance: TRASTUZUMAB
     Route: 042
     Dates: start: 20150630
  15. SOLUPRED [Suspect]
     Active Substance: PREDNISOLONE
     Dosage: DOSE: 50
     Route: 048
     Dates: start: 20150701, end: 20150721

REACTIONS (1)
  - Retinal detachment [Recovered/Resolved]

NARRATIVE: CASE EVENT DATE: 20150803
